FAERS Safety Report 5955393-0 (Version None)
Quarter: 2008Q4

REPORT INFORMATION
  Report Type: 
  Country: None (occurrence: None)
  Receive Date: 20081117
  Receipt Date: 20081110
  Transmission Date: 20090506
  Serious: Yes (Hospitalization, Other)
  Sender: FDA-Public Use
  Company Number: US-ELI_LILLY_AND_COMPANY-US200811003135

PATIENT
  Age: 70 Year
  Sex: Male

DRUGS (3)
  1. HUMALOG [Suspect]
     Dosage: UNK, UNK
     Dates: start: 20040101
  2. AMLODIPINE [Concomitant]
     Dosage: UNK, DAILY (1/D)
  3. COQ10 [Concomitant]

REACTIONS (5)
  - ANGIOPLASTY [None]
  - BLOOD GLUCOSE INCREASED [None]
  - CHEST PAIN [None]
  - HOSPITALISATION [None]
  - MALAISE [None]
